FAERS Safety Report 7384491-2 (Version None)
Quarter: 2011Q1

REPORT INFORMATION
  Report Type: 
  Country: None (occurrence: None)
  Receive Date: 20110330
  Receipt Date: 20110326
  Transmission Date: 20110831
  Serious: Yes (Other)
  Sender: FDA-Public Use
  Company Number: US-PFIZER INC-2011067620

PATIENT
  Sex: Male
  Weight: 36.281 kg

DRUGS (2)
  1. CHILDREN'S ADVIL [Suspect]
     Indication: ABDOMINAL PAIN UPPER
  2. CHILDREN'S ADVIL [Suspect]
     Indication: INFLUENZA LIKE ILLNESS
     Dosage: 3 TABLESPOONS, UNKNOWN FREQUENCY
     Route: 048
     Dates: start: 20110325, end: 20110326

REACTIONS (4)
  - ABDOMINAL PAIN UPPER [None]
  - SWELLING FACE [None]
  - LIP SWELLING [None]
  - EYE SWELLING [None]
